FAERS Safety Report 8201320-5 (Version None)
Quarter: 2012Q1

REPORT INFORMATION
  Report Type: 
  Country: None (occurrence: None)
  Receive Date: 20120312
  Receipt Date: 20120305
  Transmission Date: 20120608
  Serious: Yes (Death, Life-Threatening, Hospitalization, Other)
  Sender: FDA-Public Use
  Company Number: JP-CELGENEUS-087-50794-12021037

PATIENT
  Sex: Female

DRUGS (20)
  1. MAGMITT [Concomitant]
     Route: 065
     Dates: start: 20111003, end: 20120129
  2. VIDAZA [Suspect]
     Route: 041
     Dates: start: 20111107, end: 20111111
  3. VIDAZA [Suspect]
     Route: 041
     Dates: start: 20120116, end: 20120120
  4. KENKETSU VENOGLOBULIN-IH [Concomitant]
     Route: 065
     Dates: start: 20120130, end: 20120131
  5. HABEKACIN [Concomitant]
     Route: 065
     Dates: start: 20120130, end: 20120131
  6. NEUTROGIN [Concomitant]
     Route: 065
     Dates: start: 20120131, end: 20120202
  7. VIDAZA [Suspect]
     Route: 041
     Dates: start: 20111003, end: 20111007
  8. DORIPENEM MONOHYDRATE [Concomitant]
     Route: 065
     Dates: start: 20120129, end: 20120202
  9. LANSOPRAZOLE [Concomitant]
     Route: 065
     Dates: start: 20120130, end: 20120202
  10. KYTRIL [Concomitant]
     Route: 065
     Dates: start: 20120116, end: 20120120
  11. PURSENNID [Concomitant]
     Route: 065
     Dates: start: 20111003, end: 20120129
  12. JUVELA N [Concomitant]
     Route: 065
     Dates: start: 20111003, end: 20120129
  13. RAMELTEON [Concomitant]
     Route: 065
     Dates: start: 20111107, end: 20111111
  14. EXJADE [Concomitant]
     Route: 065
     Dates: start: 20120120, end: 20120129
  15. FUNGUARD [Concomitant]
     Route: 065
     Dates: start: 20120131, end: 20120202
  16. VIDAZA [Suspect]
     Route: 041
     Dates: start: 20111212, end: 20111216
  17. PAXIL [Concomitant]
     Route: 065
     Dates: start: 20111003, end: 20120129
  18. CLONAZEPAM [Concomitant]
     Route: 065
     Dates: start: 20111003, end: 20120129
  19. RAMELTEON [Concomitant]
     Route: 065
     Dates: start: 20111003, end: 20111007
  20. RAMELTEON [Concomitant]
     Route: 065
     Dates: start: 20111212, end: 20111216

REACTIONS (2)
  - SEPSIS [None]
  - PLATELET COUNT DECREASED [None]
